FAERS Safety Report 23938742 (Version 1)
Quarter: 2024Q2

REPORT INFORMATION
  Report Type: Spontaneous
  Country: TH (occurrence: TH)
  Receive Date: 20240604
  Receipt Date: 20240604
  Transmission Date: 20240716
  Serious: Yes (Death, Other)
  Sender: FDA-Public Use
  Company Number: TH-AMGEN-THASP2024107291

PATIENT
  Age: 79 Year
  Sex: Male

DRUGS (2)
  1. LUMAKRAS [Suspect]
     Active Substance: SOTORASIB
     Indication: Non-small cell lung cancer
     Dosage: 240 MILLIGRAM, QD (2 TABLET DAILY)
     Route: 065
     Dates: start: 202403, end: 2024
  2. LUMAKRAS [Suspect]
     Active Substance: SOTORASIB
     Dosage: UNK
     Route: 065
     Dates: start: 2024, end: 202405

REACTIONS (3)
  - Non-small cell lung cancer [Fatal]
  - Interstitial lung disease [Recovering/Resolving]
  - Off label use [Unknown]

NARRATIVE: CASE EVENT DATE: 20240301
